FAERS Safety Report 5473259-X (Version None)
Quarter: 2007Q3

REPORT INFORMATION
  Report Type: 
  Country: None (occurrence: None)
  Receive Date: 20070927
  Receipt Date: 20070910
  Transmission Date: 20080115
  Serious: Yes (Other)
  Sender: FDA-Public Use
  Company Number: OSCN-GE-0702S-0085

PATIENT
  Age: 48 Year
  Sex: Female

DRUGS (3)
  1. OMNISCAN [Suspect]
     Indication: DRUG USE FOR UNKNOWN INDICATION
     Dosage: 20 ML, SINGLE DOSE, I.V.
     Route: 042
     Dates: start: 20060920, end: 20060920
  2. 45 ML, SINGLE DOSE.I.V. [Concomitant]
  3. 50 ML, SINGLE DOSE, I. V. [Concomitant]

REACTIONS (5)
  - DIABETES MELLITUS [None]
  - GLOMERULONEPHRITIS [None]
  - MULTI-ORGAN FAILURE [None]
  - NEPHROGENIC SYSTEMIC FIBROSIS [None]
  - RENAL TRANSPLANT [None]
